FAERS Safety Report 22210931 (Version 1)
Quarter: 2023Q2

REPORT INFORMATION
  Report Type: Other
  Country: PA (occurrence: PA)
  Receive Date: 20230414
  Receipt Date: 20230414
  Transmission Date: 20230722
  Serious: Yes (Other)
  Sender: FDA-Public Use
  Company Number: PA-TOLMAR, INC.-23PA039403

PATIENT
  Sex: Male

DRUGS (2)
  1. ELIGARD [Suspect]
     Active Substance: LEUPROLIDE ACETATE
     Indication: Prostate cancer
     Dosage: 45 MILLIGRAM, Q 6 MONTH
     Route: 058
     Dates: start: 20200113
  2. XTANDI [Suspect]
     Active Substance: ENZALUTAMIDE
     Indication: Prostate cancer
     Dosage: 4 DOSAGE FORM, QD
     Route: 048
     Dates: start: 20200113

REACTIONS (1)
  - Lung neoplasm malignant [Not Recovered/Not Resolved]
